FAERS Safety Report 19592996 (Version 2)
Quarter: 2021Q3

REPORT INFORMATION
  Report Type: Spontaneous
  Country: JP (occurrence: JP)
  Receive Date: 20210722
  Receipt Date: 20210805
  Transmission Date: 20211014
  Serious: Yes (Other)
  Sender: FDA-Public Use
  Company Number: JP-TEVA-2021-JP-003511J

PATIENT
  Age: 103 Year
  Sex: Male

DRUGS (2)
  1. MAGMITT [Concomitant]
     Active Substance: MAGNESIUM OXIDE
     Route: 048
  2. TAMSULOSIN HYDROCHLORIDE OD TABLET 0.2MG ^TYK^ [Suspect]
     Active Substance: TAMSULOSIN HYDROCHLORIDE
     Indication: PRODUCT USED FOR UNKNOWN INDICATION
     Dosage: .2 MILLIGRAM DAILY;
     Route: 048

REACTIONS (1)
  - Syncope [Unknown]
